FAERS Safety Report 21805288 (Version 1)
Quarter: 2023Q1

REPORT INFORMATION
  Report Type: Spontaneous
  Country: GB (occurrence: GB)
  Receive Date: 20230102
  Receipt Date: 20230102
  Transmission Date: 20230418
  Serious: Yes (Hospitalization, Other)
  Sender: FDA-Public Use
  Company Number: GB-MHRA-MED-202212151609427170-LNVCW

PATIENT
  Age: 65 Year
  Sex: Male

DRUGS (10)
  1. INVOKANA [Suspect]
     Active Substance: CANAGLIFLOZIN
     Indication: Diabetes mellitus
     Route: 065
     Dates: start: 20220421, end: 20221212
  2. AZELASTINE [Concomitant]
     Active Substance: AZELASTINE
     Dates: start: 20161110
  3. CELECOXIB [Concomitant]
     Active Substance: CELECOXIB
     Dates: start: 20170817
  4. DIHYDROCODEINE [Concomitant]
     Active Substance: DIHYDROCODEINE
     Indication: Pain
     Dates: start: 20161110
  5. DULOXETINE [Concomitant]
     Active Substance: DULOXETINE
     Dates: start: 20210413
  6. HERBALS [Concomitant]
     Active Substance: HERBALS
     Dates: start: 20201108
  7. METFORMIN [Concomitant]
     Active Substance: METFORMIN HYDROCHLORIDE
     Dates: start: 20201208
  8. MOMETASONE [Concomitant]
     Active Substance: MOMETASONE
     Dates: start: 20161116
  9. OMEPRAZOLE [Concomitant]
     Active Substance: OMEPRAZOLE
     Dates: start: 20161110
  10. ACETAMINOPHEN [Concomitant]
     Active Substance: ACETAMINOPHEN
     Dates: start: 20161110

REACTIONS (5)
  - Rectal abscess [Recovering/Resolving]
  - Proctalgia [Unknown]
  - Induration [Unknown]
  - Perineal erythema [Unknown]
  - Pyrexia [Unknown]

NARRATIVE: CASE EVENT DATE: 20221120
